FAERS Safety Report 18360036 (Version 1)
Quarter: 2020Q4

REPORT INFORMATION
  Report Type: Spontaneous
  Country: US (occurrence: US)
  Receive Date: 20201007
  Receipt Date: 20201007
  Transmission Date: 20210114
  Serious: No
  Sender: FDA-Public Use
  Company Number: None

PATIENT
  Age: 82 Year
  Sex: Female

DRUGS (1)
  1. ODOMZO [Suspect]
     Active Substance: SONIDEGIB
     Indication: BASAL CELL CARCINOMA
     Dosage: ON EMPTY STOMACH AT 1 HRS BEFORE AND 2 HRS AFTER
     Route: 048
     Dates: start: 202002

REACTIONS (1)
  - Nephrolithiasis [None]
